FAERS Safety Report 7057136-9 (Version None)
Quarter: 2010Q4

REPORT INFORMATION
  Report Type: 
  Country: None (occurrence: None)
  Receive Date: 20101021
  Receipt Date: 20101021
  Transmission Date: 20110411
  Serious: No
  Sender: FDA-Public Use
  Company Number: None

PATIENT
  Age: 66 Year
  Sex: Female
  Weight: 61.2356 kg

DRUGS (1)
  1. OXYCONTIN [Suspect]
     Indication: PAIN
     Dosage: 50MG, 40MG, 50MG AM, NOON, PM  PO
     Route: 048

REACTIONS (2)
  - FOREIGN BODY [None]
  - PRODUCT FORMULATION ISSUE [None]
